FAERS Safety Report 7261749-9 (Version None)
Quarter: 2011Q1

REPORT INFORMATION
  Report Type: 
  Country: None (occurrence: None)
  Receive Date: 20110130
  Receipt Date: 20101103
  Transmission Date: 20110831
  Serious: No
  Sender: FDA-Public Use
  Company Number: US-ABBOTT-10P-163-0683315-00

PATIENT
  Age: 37 Year
  Sex: Female

DRUGS (7)
  1. ADVAIR [Concomitant]
     Indication: ASTHMA
  2. FLONASE [Concomitant]
     Indication: HYPERSENSITIVITY
     Dosage: DAILY
  3. IMURAN [Concomitant]
     Indication: CROHN'S DISEASE
     Dosage: 100MG DAILY
  4. ALBUTEROL [Concomitant]
     Indication: ASTHMA
  5. NEXIUM [Concomitant]
     Indication: GASTROOESOPHAGEAL REFLUX DISEASE
     Dosage: 50 MG DAILY
  6. HUMIRA [Suspect]
     Indication: CROHN'S DISEASE
     Dates: start: 20100916
  7. PENTASA [Concomitant]
     Indication: CROHN'S DISEASE
     Dosage: 8 TABLETS DAILY

REACTIONS (2)
  - RASH PUSTULAR [None]
  - RASH [None]
